FAERS Safety Report 4428674-X (Version None)
Quarter: 2004Q3

REPORT INFORMATION
  Report Type: 
  Country: None (occurrence: None)
  Receive Date: 20040818
  Receipt Date: 20031009
  Transmission Date: 20050211
  Serious: Yes (Life-Threatening)
  Sender: FDA-Public Use
  Company Number: US-BRISTOL-MYERS SQUIBB COMPANY-12407664

PATIENT
  Age: 80 Year
  Sex: Male
  Weight: 98 kg

DRUGS (12)
  1. TEQUIN [Suspect]
     Indication: BRONCHITIS
     Route: 042
     Dates: start: 20031006, end: 20031009
  2. TEQUIN [Suspect]
     Indication: CARDIAC FAILURE CONGESTIVE
     Route: 042
     Dates: start: 20031006, end: 20031009
  3. GLYBURIDE [Suspect]
     Indication: DIABETES MELLITUS NON-INSULIN-DEPENDENT
     Route: 048
     Dates: end: 20031009
  4. BUMEX [Concomitant]
     Dosage: 2 MG AM, 1 MG PM
  5. LISINOPRIL [Concomitant]
     Route: 048
  6. ALBUTEROL [Concomitant]
     Dosage: AND PRN
     Route: 055
  7. PEPCID [Concomitant]
  8. ATIVAN [Concomitant]
     Dosage: DOSE ^PRN^
  9. HALDOL [Concomitant]
     Route: 030
  10. SPIRONOLACTONE [Concomitant]
  11. TRAZODONE HCL [Concomitant]
  12. PROTONIX [Concomitant]

REACTIONS (1)
  - HYPOGLYCAEMIA [None]
